FAERS Safety Report 17186119 (Version 1)
Quarter: 2019Q4

REPORT INFORMATION
  Report Type: Spontaneous
  Country: SE (occurrence: SE)
  Receive Date: 20191220
  Receipt Date: 20191220
  Transmission Date: 20200122
  Serious: Yes (Hospitalization)
  Sender: FDA-Public Use
  Company Number: SE-MYLANLABS-2019M1126705

PATIENT
  Age: 61 Year
  Sex: Female

DRUGS (5)
  1. PROPAVAN [Suspect]
     Active Substance: PROPIOMAZINE
     Indication: PRODUCT USED FOR UNKNOWN INDICATION
     Dosage: 6 ST
     Route: 048
     Dates: start: 20190213, end: 20190213
  2. ANTABUS [Suspect]
     Active Substance: DISULFIRAM
     Indication: PRODUCT USED FOR UNKNOWN INDICATION
     Dosage: 2 ANTABUS
     Route: 048
     Dates: start: 20190213, end: 20190213
  3. IMOVANE [Suspect]
     Active Substance: ZOPICLONE
     Indication: PRODUCT USED FOR UNKNOWN INDICATION
     Dosage: 4 IMOVANE
     Route: 048
     Dates: start: 20190213, end: 20190213
  4. LERGIGAN (PROMETHAZINE) [Suspect]
     Active Substance: PROMETHAZINE HYDROCHLORIDE
     Indication: PRODUCT USED FOR UNKNOWN INDICATION
     Dosage: 10 LERGIGAN
     Route: 048
     Dates: start: 20190213, end: 20190213
  5. BISOPROLOL [Suspect]
     Active Substance: BISOPROLOL
     Indication: PRODUCT USED FOR UNKNOWN INDICATION
     Dosage: 10 MILLIGRAM
     Route: 048
     Dates: start: 20190213, end: 20190213

REACTIONS (4)
  - Intentional self-injury [Unknown]
  - Somnolence [Unknown]
  - Dizziness [Unknown]
  - Intentional overdose [Unknown]

NARRATIVE: CASE EVENT DATE: 201902
